FAERS Safety Report 4840727-0 (Version None)
Quarter: 2005Q4

REPORT INFORMATION
  Report Type: 
  Country: None (occurrence: None)
  Receive Date: 20051130
  Receipt Date: 20051111
  Transmission Date: 20060501
  Serious: Yes (Death, Hospitalization)
  Sender: FDA-Public Use
  Company Number: DE-JNJFOC-20051106059

PATIENT
  Age: 81 Year
  Sex: Female
  Weight: 68 kg

DRUGS (6)
  1. INFLIXIMAB [Suspect]
     Indication: RHEUMATOID ARTHRITIS
     Route: 042
  2. METHOTREXATE [Concomitant]
     Indication: RHEUMATOID ARTHRITIS
  3. FOLIC ACID [Concomitant]
     Indication: RHEUMATOID ARTHRITIS
  4. DICLOFENAC [Concomitant]
     Indication: RHEUMATOID ARTHRITIS
  5. FOSAMAX [Concomitant]
     Indication: OSTEOPOROSIS
  6. NEXIUM [Concomitant]
     Indication: GASTROINTESTINAL DISORDER THERAPY

REACTIONS (2)
  - OVARIAN EPITHELIAL CANCER [None]
  - PERITONEAL CARCINOMA [None]
